FAERS Safety Report 7649202-1 (Version None)
Quarter: 2011Q3

REPORT INFORMATION
  Report Type: 
  Country: None (occurrence: None)
  Receive Date: 20110726
  Receipt Date: 20110712
  Transmission Date: 20111222
  Serious: Yes (Other)
  Sender: FDA-Public Use
  Company Number: FK201101361

PATIENT
  Age: 77 Year
  Sex: Male

DRUGS (2)
  1. DIAMORPHINE (DIAMORPHINE) [Suspect]
     Indication: PROCEDURAL PAIN
     Dosage: EPIDURAL
     Route: 008
  2. BUPIVACAINE (MANUFACTURER UNKNOWN) (BUPIVACAINE) (BUPIVACAINE) [Suspect]
     Indication: PROCEDURAL PAIN
     Dosage: EPIDURAL
     Route: 008

REACTIONS (1)
  - RESPIRATORY FAILURE [None]
